FAERS Safety Report 5609374-7 (Version None)
Quarter: 2008Q1

REPORT INFORMATION
  Report Type: 
  Country: None (occurrence: None)
  Receive Date: 20080131
  Receipt Date: 20080122
  Transmission Date: 20080703
  Serious: Yes (Hospitalization)
  Sender: FDA-Public Use
  Company Number: DE-ROCHE-542776

PATIENT
  Age: 39 Year
  Sex: Male
  Weight: 89 kg

DRUGS (4)
  1. PEG-INTERFERON ALFA 2A (RO 25-8310) [Suspect]
     Dosage: DOSE BLINDED.
     Route: 058
     Dates: start: 20070625
  2. RIBAVIRIN [Suspect]
     Dosage: DOSE BLINDED.
     Route: 048
     Dates: start: 20070625
  3. PARACETAMOL [Concomitant]
     Dates: start: 20070626
  4. UNSPECIFIED DRUG [Concomitant]
     Dosage: REPORTED AS AMPHOMORONAL.
     Dates: start: 20070820

REACTIONS (1)
  - SKIN ULCER [None]
